FAERS Safety Report 8594982 (Version 4)
Quarter: 2012Q4

REPORT INFORMATION
  Report Type: Report from Study
  Country: FR (occurrence: FR)
  Receive Date: 20120604
  Receipt Date: 20121121
  Transmission Date: 20130627
  Serious: Yes (Hospitalization)
  Sender: FDA-Public Use
  Company Number: FR-ABBOTT-12P-056-0939427-01

PATIENT
  Age: 35 Year
  Sex: Female
  Weight: 54 kg

DRUGS (4)
  1. HUMIRA [Suspect]
     Indication: CROHN^S DISEASE
     Dosage: Baseline:  Induction
     Route: 058
     Dates: start: 20080708, end: 20080708
  2. HUMIRA [Suspect]
     Dosage: Induction:  Week 2
     Route: 058
     Dates: start: 200807, end: 200807
  3. HUMIRA [Suspect]
     Route: 058
     Dates: end: 20080808
  4. HUMIRA [Suspect]
     Route: 058
     Dates: start: 20081001, end: 20120102

REACTIONS (1)
  - Behcet^s syndrome [Recovered/Resolved]
